FAERS Safety Report 6436067-9 (Version None)
Quarter: 2009Q4

REPORT INFORMATION
  Report Type: 
  Country: None (occurrence: None)
  Receive Date: 20091111
  Receipt Date: 20091105
  Transmission Date: 20100525
  Serious: Yes (Other)
  Sender: FDA-Public Use
  Company Number: US-ELI_LILLY_AND_COMPANY-US200911001405

PATIENT
  Sex: Female

DRUGS (5)
  1. HUMALOG [Suspect]
     Dosage: 40 U, 3/D
  2. HUMALOG [Suspect]
     Dosage: 40 U, 3/D
  3. HUMALOG [Suspect]
     Dosage: 40 U, 3/D
  4. HUMALOG [Suspect]
     Dosage: 40 U, 3/D
  5. LANTUS [Concomitant]
     Dosage: 60 U, EACH MORNING

REACTIONS (6)
  - BLINDNESS [None]
  - BLOOD GLUCOSE INCREASED [None]
  - CATARACT [None]
  - GLYCOSYLATED HAEMOGLOBIN INCREASED [None]
  - INSULIN RESISTANCE [None]
  - RETINAL HAEMORRHAGE [None]
